FAERS Safety Report 6332325-7 (Version None)
Quarter: 2009Q3

REPORT INFORMATION
  Report Type: 
  Country: None (occurrence: None)
  Receive Date: 20090827
  Receipt Date: 20090827
  Transmission Date: 20100115
  Serious: No
  Sender: FDA-Public Use
  Company Number: None

PATIENT
  Sex: Female

DRUGS (1)
  1. FORTEO [Suspect]
     Indication: OSTEOPOROSIS
     Dosage: 600MCG/24ML EVERYDAY SQ SOT 4/6/2008
     Route: 058
     Dates: start: 20080406

REACTIONS (1)
  - TOOTH DISORDER [None]
